FAERS Safety Report 13608862 (Version 1)
Quarter: 2017Q2

REPORT INFORMATION
  Report Type: Spontaneous
  Country: US (occurrence: US)
  Receive Date: 20170602
  Receipt Date: 20170602
  Transmission Date: 20170830
  Serious: No
  Sender: FDA-Public Use
  Company Number: US-TEVA-773940ACC

PATIENT
  Age: 37 Year
  Sex: Female
  Weight: 75 kg

DRUGS (4)
  1. PARAGARD T 380A [Suspect]
     Active Substance: COPPER
     Indication: CONTRACEPTION
     Dates: start: 20170328
  2. OLANZAPINE. [Concomitant]
     Active Substance: OLANZAPINE
  3. LORAZEPAM. [Concomitant]
     Active Substance: LORAZEPAM
     Indication: PANIC ATTACK
  4. HALOPERIDOL. [Concomitant]
     Active Substance: HALOPERIDOL
     Indication: SCHIZOPHRENIA

REACTIONS (1)
  - Vaginal haemorrhage [Unknown]

NARRATIVE: CASE EVENT DATE: 20170514
